FAERS Safety Report 10236923 (Version 2)
Quarter: 2014Q3

REPORT INFORMATION
  Report Type: Spontaneous
  Country: CN (occurrence: CN)
  Receive Date: 20140613
  Receipt Date: 20140822
  Transmission Date: 20150326
  Serious: Yes (Hospitalization)
  Sender: FDA-Public Use
  Company Number: PHHY2014CN072603

PATIENT
  Age: 62 Year
  Sex: Female

DRUGS (6)
  1. VITAMIN B COMPLEX [Suspect]
     Active Substance: CYANOCOBALAMIN\DEXPANTHENOL\NIACINAMIDE\PYRIDOXINE HYDROCHLORIDE\RIBOFLAVIN 5^-PHOSPHATE SODIUM\THIAMINE HYDROCHLORIDE\VITAMIN B COMPLEX
     Indication: HEADACHE
  2. CEFATHIAMIDINE [Suspect]
     Active Substance: CEFTRIAXONE SODIUM
     Indication: URTICARIA
  3. CARBAMAZEPINE. [Suspect]
     Active Substance: CARBAMAZEPINE
     Indication: HEADACHE
  4. MECOBALAMIN [Suspect]
     Active Substance: METHYLCOBALAMIN
     Indication: HEADACHE
  5. LORATADINE. [Suspect]
     Active Substance: LORATADINE
     Indication: URTICARIA
  6. FUSIDIC ACID [Concomitant]
     Active Substance: FUSIDIC ACID
     Dosage: 0.5 MG, QD
     Route: 041

REACTIONS (15)
  - Urticaria [Unknown]
  - Scab [Unknown]
  - Mucosal erosion [Unknown]
  - Rash generalised [Unknown]
  - Pyrexia [Not Recovered/Not Resolved]
  - Rash maculo-papular [Unknown]
  - Conjunctival hyperaemia [Unknown]
  - Abdominal distension [Unknown]
  - Cough [Unknown]
  - Blister [Unknown]
  - Drug ineffective [Unknown]
  - Epidermolysis bullosa [Unknown]
  - Erythema [Unknown]
  - Drug eruption [Unknown]
  - Productive cough [Unknown]
